FAERS Safety Report 4773419-7 (Version None)
Quarter: 2005Q3

REPORT INFORMATION
  Report Type: 
  Country: None (occurrence: None)
  Receive Date: 20050920
  Receipt Date: 20050908
  Transmission Date: 20060218
  Serious: Yes (Hospitalization)
  Sender: FDA-Public Use
  Company Number: JP-JNJFOC-20050704508

PATIENT
  Sex: Male
  Weight: 56 kg

DRUGS (16)
  1. REMICADE [Suspect]
     Route: 042
  2. REMICADE [Suspect]
     Indication: RHEUMATOID ARTHRITIS
     Route: 042
  3. RHEUMATREX [Suspect]
     Route: 048
  4. RHEUMATREX [Suspect]
     Route: 048
  5. RHEUMATREX [Suspect]
     Route: 048
  6. RHEUMATREX [Suspect]
     Indication: RHEUMATOID ARTHRITIS
     Route: 048
  7. PREDNISOLONE [Suspect]
     Indication: RHEUMATOID ARTHRITIS
     Route: 048
  8. LIMETHASON [Suspect]
     Indication: RHEUMATOID ARTHRITIS
     Route: 042
  9. METHOTREXATE [Suspect]
     Indication: RHEUMATOID ARTHRITIS
     Route: 048
  10. MOBIC [Concomitant]
     Indication: RHEUMATOID ARTHRITIS
     Route: 048
  11. LEUCOVORIN [Concomitant]
     Route: 048
  12. GASTER [Concomitant]
     Indication: GASTRITIS
     Route: 048
  13. ROCALTROL [Concomitant]
     Indication: OSTEOPOROSIS
     Dosage: ^0.5 RG^
     Route: 048
  14. ISCOTIN [Concomitant]
     Indication: TUBERCULOSIS PROPHYLAXIS
     Route: 048
  15. LOXOPROFEN [Concomitant]
     Indication: OSTEOPOROSIS
     Dosage: 0.5RG
     Route: 048
  16. MECOBALAMIN [Concomitant]
     Indication: NEURALGIA
     Route: 048

REACTIONS (3)
  - HERPES ZOSTER [None]
  - PYREXIA [None]
  - URTICARIA [None]
